FAERS Safety Report 17802818 (Version 1)
Quarter: 2020Q2

REPORT INFORMATION
  Report Type: Spontaneous
  Country: US (occurrence: US)
  Receive Date: 20200519
  Receipt Date: 20200519
  Transmission Date: 20200714
  Serious: No
  Sender: FDA-Public Use
  Company Number: None

PATIENT
  Age: 67 Year
  Sex: Female
  Weight: 58.5 kg

DRUGS (2)
  1. ZOLPIDEM 10 MG TABLETS [Suspect]
     Active Substance: ZOLPIDEM TARTRATE
     Indication: INSOMNIA
     Dosage: ?          QUANTITY:1 TABLET(S);?
     Route: 048
     Dates: start: 20200423, end: 20200519
  2. CALCIUM WITH VITAMIN  D [Concomitant]
     Active Substance: CALCIUM\VITAMIN D

REACTIONS (5)
  - Sluggishness [None]
  - Somnolence [None]
  - Product substitution issue [None]
  - Hot flush [None]
  - Asthenia [None]

NARRATIVE: CASE EVENT DATE: 20200423
